FAERS Safety Report 15602480 (Version 1)
Quarter: 2018Q4

REPORT INFORMATION
  Report Type: Spontaneous
  Country: FR (occurrence: FR)
  Receive Date: 20181109
  Receipt Date: 20181109
  Transmission Date: 20190205
  Serious: Yes (Other)
  Sender: FDA-Public Use
  Company Number: FR-PFIZER INC-2018453459

PATIENT
  Age: 33 Year
  Sex: Female

DRUGS (5)
  1. LYRICA [Concomitant]
     Active Substance: PREGABALIN
  2. DEXAMETHASONE. [Concomitant]
     Active Substance: DEXAMETHASONE
  3. VENLAFAXINE HCL [Suspect]
     Active Substance: VENLAFAXINE HYDROCHLORIDE
     Route: 048
     Dates: start: 2018
  4. NAROPEINE [Concomitant]
     Active Substance: ROPIVACAINE HYDROCHLORIDE
  5. BIPROFENID [Concomitant]
     Active Substance: KETOPROFEN

REACTIONS (2)
  - Hypokalaemia [Recovered/Resolved]
  - Electrocardiogram abnormal [Recovered/Resolved]

NARRATIVE: CASE EVENT DATE: 2018
